FAERS Safety Report 6235051-8 (Version None)
Quarter: 2009Q2

REPORT INFORMATION
  Report Type: 
  Country: None (occurrence: None)
  Receive Date: 20090618
  Receipt Date: 20090615
  Transmission Date: 20091009
  Serious: Yes (Other)
  Sender: FDA-Public Use
  Company Number: AU-WYE-G03851009

PATIENT
  Sex: Male

DRUGS (4)
  1. EFFEXOR XR [Suspect]
     Dosage: UNKNOWN
     Route: 048
     Dates: start: 19990101
  2. LITHIUM CARBONATE [Concomitant]
  3. MIRTAZAPINE [Concomitant]
  4. COLGOUT [Interacting]
     Indication: GOUT

REACTIONS (2)
  - DRUG INTERACTION [None]
  - SUICIDAL IDEATION [None]
